FAERS Safety Report 7221697-7 (Version None)
Quarter: 2011Q1

REPORT INFORMATION
  Report Type: 
  Country: None (occurrence: None)
  Receive Date: 20110112
  Receipt Date: 20110107
  Transmission Date: 20110831
  Serious: Yes (Hospitalization)
  Sender: FDA-Public Use
  Company Number: FR-ROCHE-752208

PATIENT
  Sex: Female
  Weight: 89 kg

DRUGS (8)
  1. KEPPRA [Suspect]
     Indication: EPILEPSY
     Dosage: 1250 MG IN MORNING AND IN EVENING
     Route: 048
  2. TEGRETOL [Suspect]
     Indication: EPILEPSY
     Dosage: 400 MG IN MORNING AND 400 EVENING
     Route: 048
  3. RIVOTRIL [Suspect]
     Route: 048
  4. LAMICTAL [Suspect]
     Indication: EPILEPSY
     Dosage: 250 MG IN MORNING AND 300 MG IN EVENING
     Route: 048
  5. RIVOTRIL [Suspect]
     Route: 048
  6. RIVOTRIL [Suspect]
     Route: 048
  7. LAMICTAL [Suspect]
     Dosage: DOSAGE INCREASED
     Route: 048
     Dates: start: 20101003
  8. RIVOTRIL [Suspect]
     Route: 048

REACTIONS (3)
  - DRUG EFFECT DECREASED [None]
  - SELF-MEDICATION [None]
  - DRUG LEVEL DECREASED [None]
